FAERS Safety Report 9124429 (Version 4)
Quarter: 2013Q3

REPORT INFORMATION
  Report Type: Report from Study
  Country: BR (occurrence: BR)
  Receive Date: 20130116
  Receipt Date: 20130826
  Transmission Date: 20140515
  Serious: Yes (Other)
  Sender: FDA-Public Use
  Company Number: BR-SANOFI-AVENTIS-2013SA002261

PATIENT
  Age: 73 Year
  Sex: Male
  Weight: 79 kg

DRUGS (6)
  1. LANTUS [Suspect]
     Indication: TYPE 2 DIABETES MELLITUS
     Dosage: 23 IU IN THE MORNING AND 3 IU AT NIGHT
     Route: 058
  2. CLIKSTAR [Concomitant]
     Indication: DEVICE THERAPY
  3. ROSUVASTATIN CALCIUM [Concomitant]
     Indication: BLOOD CHOLESTEROL
     Dates: start: 2009
  4. LISINOPRIL [Concomitant]
     Indication: RENAL DISORDER
     Dates: start: 2009
  5. METFORMIN [Concomitant]
     Indication: TYPE 1 DIABETES MELLITUS
  6. HUMALOG [Concomitant]
     Indication: TYPE 1 DIABETES MELLITUS
     Dates: start: 2004

REACTIONS (10)
  - Road traffic accident [Unknown]
  - Wrong technique in drug usage process [Unknown]
  - Laceration [Recovered/Resolved]
  - Exostosis [Recovered/Resolved]
  - Spinal pain [Recovered/Resolved]
  - Eye inflammation [Not Recovered/Not Resolved]
  - Vision blurred [Unknown]
  - Ocular discomfort [Unknown]
  - Blood cholesterol abnormal [Recovered/Resolved]
  - Retinal oedema [Not Recovered/Not Resolved]
